FAERS Safety Report 21410699 (Version 2)
Quarter: 2022Q4

REPORT INFORMATION
  Report Type: Report from Study
  Country: US (occurrence: US)
  Receive Date: 20221005
  Receipt Date: 20221230
  Transmission Date: 20230113
  Serious: No
  Sender: FDA-Public Use
  Company Number: US-ABBVIE-22K-163-4403581-00

PATIENT
  Age: 65 Year
  Sex: Female
  Weight: 79.378 kg

DRUGS (9)
  1. HUMIRA [Suspect]
     Active Substance: ADALIMUMAB
     Indication: Colitis ulcerative
     Dosage: CITRATE FREE
     Route: 058
     Dates: start: 201904, end: 201904
  2. HUMIRA [Suspect]
     Active Substance: ADALIMUMAB
     Indication: Contusion
     Dosage: CITRATE FREE
     Route: 058
     Dates: start: 20190423
  3. HUMIRA [Suspect]
     Active Substance: ADALIMUMAB
     Indication: Crohn^s disease
  4. HUMIRA [Suspect]
     Active Substance: ADALIMUMAB
     Indication: Haemorrhage
  5. HUMIRA [Suspect]
     Active Substance: ADALIMUMAB
     Indication: Mass
  6. MODERNA COVID-19 VACCINE [Suspect]
     Active Substance: ELASOMERAN
     Indication: COVID-19 immunisation
     Dosage: 1ST DOSE- FREQUENCY ONE IN ONCE
     Route: 030
     Dates: start: 20210401, end: 20210401
  7. MODERNA COVID-19 VACCINE [Suspect]
     Active Substance: ELASOMERAN
     Indication: COVID-19 immunisation
     Dosage: 2ND DOSE- FREQUENCY ONE IN ONCE
     Route: 030
     Dates: start: 20210501, end: 20210501
  8. MESALAMINE [Concomitant]
     Active Substance: MESALAMINE
     Indication: Product used for unknown indication
  9. Pfizer/BioNTech [Concomitant]
     Indication: COVID-19 immunisation
     Dosage: 3RD DOSE/BOOSTER DOSE- FREQUENCY ONE IN ONCE
     Route: 030
     Dates: start: 20220701, end: 20220701

REACTIONS (11)
  - Injection site mass [Recovered/Resolved]
  - Injection site haemorrhage [Recovered/Resolved]
  - Condition aggravated [Not Recovered/Not Resolved]
  - Injection site bruising [Recovered/Resolved]
  - Constipation [Not Recovered/Not Resolved]
  - Pyrexia [Not Recovered/Not Resolved]
  - Chills [Not Recovered/Not Resolved]
  - Dizziness [Not Recovered/Not Resolved]
  - Vaccination site pain [Not Recovered/Not Resolved]
  - Inflammation [Not Recovered/Not Resolved]
  - Injection site swelling [Recovered/Resolved]

NARRATIVE: CASE EVENT DATE: 20220322
